FAERS Safety Report 9197568 (Version 2)
Quarter: 2013Q3

REPORT INFORMATION
  Report Type: Spontaneous
  Country: GB (occurrence: GB)
  Receive Date: 20130328
  Receipt Date: 20130816
  Transmission Date: 20140515
  Serious: Yes (Death, Hospitalization)
  Sender: FDA-Public Use
  Company Number: GB-GLAXOSMITHKLINE-B0877493A

PATIENT
  Age: 25 Year
  Sex: Male

DRUGS (2)
  1. TROBALT [Suspect]
     Indication: EPILEPSY
     Route: 065
     Dates: start: 20121123
  2. ANTI-EPILEPTIC MEDICATION [Concomitant]

REACTIONS (4)
  - Respiratory failure [Fatal]
  - Pneumonia [Unknown]
  - Constipation [Unknown]
  - Abdominal distension [Unknown]
